FAERS Safety Report 8777503 (Version 5)
Quarter: 2012Q4

REPORT INFORMATION
  Report Type: 
  Country: US (occurrence: US)
  Receive Date: 20120911
  Receipt Date: 20121228
  Transmission Date: 20130627
  Serious: Yes (Other)
  Sender: FDA-Public Use
  Company Number: US-JNJFOC-20120804463

PATIENT
  Age: 85 None
  Sex: Female
  Weight: 63.5 kg

DRUGS (1)
  1. NUCYNTA IR [Suspect]
     Indication: ARTHRALGIA
     Dosage: 50mg 4 times a day
     Route: 048
     Dates: start: 20120803, end: 20120804

REACTIONS (7)
  - Atrial fibrillation [Unknown]
  - Psychomotor hyperactivity [Recovered/Resolved]
  - Anxiety [Recovered/Resolved]
  - Agitation [Recovered/Resolved]
  - Anger [Recovered/Resolved]
  - Adverse drug reaction [Unknown]
  - Malaise [Not Recovered/Not Resolved]
